FAERS Safety Report 21431984 (Version 1)
Quarter: 2022Q4

REPORT INFORMATION
  Report Type: Spontaneous
  Country: DE (occurrence: DE)
  Receive Date: 20221009
  Receipt Date: 20221009
  Transmission Date: 20230113
  Serious: Yes (Hospitalization)
  Sender: FDA-Public Use
  Company Number: DE-ADRED-08427-01

PATIENT
  Age: 74 Year
  Sex: Female

DRUGS (7)
  1. VENLAFAXINE [Suspect]
     Active Substance: VENLAFAXINE HYDROCHLORIDE
     Indication: Product used for unknown indication
     Dosage: 1 DOSAGE FORMS DAILY; 75 MG, 0-1-0-0, UNIT DOSE : 1 DF , FREQUENCY : OD
  2. VENLAFAXINE [Suspect]
     Active Substance: VENLAFAXINE HYDROCHLORIDE
     Dosage: 1 DOSAGE FORMS DAILY; 150 MG, 1-0-0-0, UNIT DOSE : 1 DF , FREQUENCY : OD
  3. OPIPRAMOL [Interacting]
     Active Substance: OPIPRAMOL
     Indication: Product used for unknown indication
     Dosage: 50 MG, REQUIREMENT, DRAGEES
  4. METOPROLOL [Interacting]
     Active Substance: METOPROLOL
     Indication: Product used for unknown indication
     Dosage: 1 DOSAGE FORMS DAILY; 23.75 MG, 0.5-0-0.5-0, UNIT DOSE : 0.5 DF , FREQUENCY : BD
  5. CRIZOTINIB [Interacting]
     Active Substance: CRIZOTINIB
     Indication: Product used for unknown indication
     Dosage: 2  DAILY; 200 MG, 1-0-1-0, UNIT DOSE : 1 DF , FREQUENCY : BD
  6. RIVAROXABAN [Concomitant]
     Active Substance: RIVAROXABAN
     Indication: Product used for unknown indication
     Dosage: 1 DOSAGE FORMS DAILY; 20 MG, 1-0-0-0, UNIT DOSE : 1 DF , FREQUENCY : OD
  7. SIMVASTATIN [Concomitant]
     Active Substance: SIMVASTATIN
     Indication: Product used for unknown indication
     Dosage: 1 DOSAGE FORMS DAILY; 20 MG, 1-0-0-0, UNIT DOSE : 1 DF , FREQUENCY : OD

REACTIONS (7)
  - Electrocardiogram QT prolonged [Unknown]
  - Product prescribing error [Unknown]
  - General physical health deterioration [Unknown]
  - Tachycardia [Unknown]
  - Product monitoring error [Unknown]
  - Atrial fibrillation [Unknown]
  - Labelled drug-drug interaction medication error [Unknown]
